FAERS Safety Report 15394152 (Version 1)
Quarter: 2018Q3

REPORT INFORMATION
  Report Type: Report from Study
  Country: US (occurrence: US)
  Receive Date: 20180918
  Receipt Date: 20180918
  Transmission Date: 20181010
  Serious: Yes (Death, Other)
  Sender: FDA-Public Use
  Company Number: US-AUROBINDO-AUR-APL-2018-045731

PATIENT
  Age: 33 Year
  Sex: Male

DRUGS (2)
  1. DIVALPROEX [Suspect]
     Active Substance: DIVALPROEX SODIUM
     Indication: PRODUCT USED FOR UNKNOWN INDICATION
     Dosage: UNK
     Route: 065
  2. HEROIN [Suspect]
     Active Substance: DIAMORPHINE
     Indication: PRODUCT USED FOR UNKNOWN INDICATION
     Dosage: UNK
     Route: 065

REACTIONS (8)
  - Ventricular arrhythmia [Fatal]
  - Respiratory depression [Fatal]
  - Pneumonia aspiration [Fatal]
  - Bradycardia [Fatal]
  - Depressed level of consciousness [Fatal]
  - Hypotension [Fatal]
  - Coma [Fatal]
  - Acute lung injury [Fatal]
